FAERS Safety Report 6477459-1 (Version None)
Quarter: 2009Q4

REPORT INFORMATION
  Report Type: 
  Country: None (occurrence: None)
  Receive Date: 20091207
  Receipt Date: 20091110
  Transmission Date: 20100525
  Serious: Yes (Death, Hospitalization)
  Sender: FDA-Public Use
  Company Number: FR-SANOFI-AVENTIS-2009SA001461

PATIENT
  Age: 92 Year
  Sex: Female

DRUGS (16)
  1. LASILIX [Suspect]
     Indication: DRUG USE FOR UNKNOWN INDICATION
     Route: 051
     Dates: start: 20090507, end: 20090518
  2. LASILIX [Suspect]
     Route: 051
     Dates: start: 20090519, end: 20090521
  3. AXEPIM [Suspect]
     Route: 051
     Dates: start: 20090518, end: 20090518
  4. AXEPIM [Suspect]
     Route: 051
     Dates: start: 20090519, end: 20090521
  5. AMIKLIN [Concomitant]
     Route: 051
     Dates: start: 20090518, end: 20090518
  6. DIAMOX SRC [Concomitant]
     Indication: DRUG USE FOR UNKNOWN INDICATION
     Route: 051
     Dates: start: 20090514, end: 20090521
  7. ESOMEPRAZOLE [Concomitant]
     Indication: DRUG USE FOR UNKNOWN INDICATION
     Route: 051
     Dates: start: 20090518
  8. LANSOPRAZOLE [Concomitant]
     Indication: DRUG USE FOR UNKNOWN INDICATION
  9. ARIXTRA [Concomitant]
     Indication: DRUG USE FOR UNKNOWN INDICATION
     Route: 051
     Dates: start: 20090507, end: 20090522
  10. SOLU-MEDROL [Concomitant]
     Indication: DRUG USE FOR UNKNOWN INDICATION
     Route: 051
     Dates: start: 20090518, end: 20090524
  11. SOLU-MEDROL [Concomitant]
     Route: 051
     Dates: start: 20090515, end: 20090517
  12. MUCOMYST - SLOW RELEASE [Concomitant]
     Indication: DRUG USE FOR UNKNOWN INDICATION
     Route: 051
     Dates: start: 20090515, end: 20090521
  13. PULMICORT [Concomitant]
     Indication: DRUG USE FOR UNKNOWN INDICATION
     Route: 055
     Dates: start: 20090513
  14. NOVORAPID [Concomitant]
     Indication: DIABETES MELLITUS
     Route: 051
     Dates: start: 20090401
  15. ATROVENT [Concomitant]
     Indication: INHALATION THERAPY
     Route: 055
     Dates: start: 20090513
  16. BRICANYL [Concomitant]
     Indication: INHALATION THERAPY
     Route: 055
     Dates: start: 20090513

REACTIONS (3)
  - ENCEPHALOPATHY [None]
  - MYOCLONUS [None]
  - RENAL IMPAIRMENT [None]
